FAERS Safety Report 4663307-9 (Version None)
Quarter: 2005Q2

REPORT INFORMATION
  Report Type: 
  Country: None (occurrence: None)
  Receive Date: 20050517
  Receipt Date: 20050303
  Transmission Date: 20051028
  Serious: Yes (Hospitalization)
  Sender: FDA-Public Use
  Company Number: JP-BOEHRINGER INGELHEIM PHARMMACEUTICALS, INC.-2005-BP-03322NB

PATIENT
  Age: 79 Year
  Sex: Male
  Weight: 55 kg

DRUGS (4)
  1. SPIRIVA [Suspect]
     Indication: EMPHYSEMA
     Route: 055
     Dates: start: 20050203, end: 20050217
  2. THEOLONG [Concomitant]
     Indication: EMPHYSEMA
     Route: 048
     Dates: start: 20040326
  3. SPELEAR [Concomitant]
     Indication: EMPHYSEMA
     Route: 048
     Dates: start: 20040916
  4. PLETAL [Concomitant]
     Indication: ATHEROSCLEROSIS OBLITERANS
     Route: 048
     Dates: start: 20040916

REACTIONS (2)
  - DRY MOUTH [None]
  - SPUTUM RETENTION [None]
